FAERS Safety Report 18315312 (Version 1)
Quarter: 2020Q3

REPORT INFORMATION
  Report Type: Spontaneous
  Country: GB (occurrence: GB)
  Receive Date: 20200926
  Receipt Date: 20200926
  Transmission Date: 20201103
  Serious: Yes (Other)
  Sender: FDA-Public Use
  Company Number: GB-TEVA-2020-GB-1830845

PATIENT
  Age: 42 Year
  Sex: Female

DRUGS (1)
  1. CLARITHROMYCIN. [Suspect]
     Active Substance: CLARITHROMYCIN
     Indication: EAR INFECTION
     Dosage: 1000 MG
     Route: 048
     Dates: start: 20200817, end: 20200824

REACTIONS (4)
  - Insomnia [Recovering/Resolving]
  - Dysgeusia [Recovering/Resolving]
  - Malaise [Recovering/Resolving]
  - Vaginal infection [Recovering/Resolving]

NARRATIVE: CASE EVENT DATE: 20200818
